FAERS Safety Report 20116436 (Version 3)
Quarter: 2022Q1

REPORT INFORMATION
  Report Type: Spontaneous
  Country: US (occurrence: US)
  Receive Date: 20211126
  Receipt Date: 20220127
  Transmission Date: 20220424
  Serious: Yes (Other)
  Sender: FDA-Public Use
  Company Number: US-BoehringerIngelheim-2021-BI-140469

PATIENT
  Age: 76 Year
  Sex: Female

DRUGS (1)
  1. PRADAXA [Suspect]
     Active Substance: DABIGATRAN ETEXILATE MESYLATE
     Indication: Product used for unknown indication
     Route: 048
     Dates: start: 20210111, end: 20211122

REACTIONS (3)
  - Cerebrovascular accident [Recovered/Resolved]
  - COVID-19 [Unknown]
  - Anxiety [Unknown]

NARRATIVE: CASE EVENT DATE: 20211122
